FAERS Safety Report 11937332 (Version 2)
Quarter: 2016Q1

REPORT INFORMATION
  Report Type: Report from Study
  Country: FR (occurrence: FR)
  Receive Date: 20160121
  Receipt Date: 20160209
  Transmission Date: 20160526
  Serious: Yes (Death)
  Sender: FDA-Public Use
  Company Number: FR-ABBVIE-16P-056-1541042-00

PATIENT
  Age: 61 Year
  Sex: Female

DRUGS (4)
  1. MANTADIX [Concomitant]
     Active Substance: AMANTADINE HYDROCHLORIDE
     Indication: DYSKINESIA
     Dosage: 2 TABLET
  2. LEPONEX [Concomitant]
     Active Substance: CLOZAPINE
     Indication: HALLUCINATION
     Dosage: 1 TABLET AND A HALF
  3. RIVOTRIL [Concomitant]
     Active Substance: CLONAZEPAM
     Indication: NIGHTMARE
     Dosage: 2 DF IN EVENING
  4. DUODOPA [Suspect]
     Active Substance: CARBIDOPA\LEVODOPA
     Indication: PARKINSON^S DISEASE
     Dosage: CONTINUOUS FLOW RATE: 3.5 ML/H OVER 24H
     Route: 050
     Dates: start: 201108

REACTIONS (2)
  - Pulmonary embolism [Fatal]
  - Respiratory distress [Fatal]

NARRATIVE: CASE EVENT DATE: 201601
